FAERS Safety Report 4505268-9 (Version None)
Quarter: 2004Q4

REPORT INFORMATION
  Report Type: 
  Country: None (occurrence: None)
  Receive Date: 20041015
  Receipt Date: 20040525
  Transmission Date: 20050328
  Serious: Yes (Other)
  Sender: FDA-Public Use
  Company Number: 2004035088

PATIENT
  Age: 43 Year
  Sex: Female
  Weight: 47.6277 kg

DRUGS (2)
  1. NEURONTIN [Suspect]
     Indication: BIPOLAR DISORDER
     Dosage: 1800 MG (600 MG 3 IN 1 D) ORAL
     Route: 048
  2. VICODON (HYDROCODONE BITARTRATE, PARACETAMOL) [Concomitant]

REACTIONS (6)
  - AMNESIA [None]
  - CONVULSION [None]
  - CORRECTIVE LENS USER [None]
  - HEARING IMPAIRED [None]
  - SUICIDE ATTEMPT [None]
  - WEIGHT INCREASED [None]
